FAERS Safety Report 9773399 (Version 2)
Quarter: 2013Q4

REPORT INFORMATION
  Report Type: Report from Study
  Country: BR (occurrence: BR)
  Receive Date: 20131219
  Receipt Date: 20131219
  Transmission Date: 20140711
  Serious: Yes (Other)
  Sender: FDA-Public Use
  Company Number: PHHY2013BR124484

PATIENT
  Age: 49 Year
  Sex: Female

DRUGS (1)
  1. ONBREZ [Suspect]
     Indication: CHRONIC OBSTRUCTIVE PULMONARY DISEASE
     Dosage: 150 UG, DAILY
     Route: 055
     Dates: start: 20131030

REACTIONS (8)
  - Bipolar disorder [Unknown]
  - Breast calcifications [Unknown]
  - Intervertebral disc protrusion [Unknown]
  - Spinal pain [Not Recovered/Not Resolved]
  - Spinal disorder [Not Recovered/Not Resolved]
  - Anxiety [Recovering/Resolving]
  - Dizziness [Recovering/Resolving]
  - Wrong technique in drug usage process [Recovered/Resolved]
